FAERS Safety Report 24385843 (Version 1)
Quarter: 2024Q4

REPORT INFORMATION
  Report Type: Spontaneous
  Country: US (occurrence: US)
  Receive Date: 20241001
  Receipt Date: 20241001
  Transmission Date: 20250115
  Serious: Yes (Death, Life-Threatening, Other)
  Sender: AMGEN
  Company Number: US-AMGEN-USASP2024191432

PATIENT
  Age: 49 Year
  Sex: Female

DRUGS (1)
  1. RITUXIMAB [Suspect]
     Active Substance: RITUXIMAB
     Indication: Epstein-Barr viraemia
     Dosage: UNK
     Route: 065

REACTIONS (7)
  - Death [Fatal]
  - Encephalopathy [Unknown]
  - Multiple organ dysfunction syndrome [Unknown]
  - Shock [Unknown]
  - Haemophagocytic lymphohistiocytosis [Unknown]
  - Drug ineffective for unapproved indication [Unknown]
  - Off label use [Unknown]
